FAERS Safety Report 11205033 (Version 2)
Quarter: 2015Q3

REPORT INFORMATION
  Report Type: Spontaneous
  Country: IE (occurrence: IE)
  Receive Date: 20150622
  Receipt Date: 20150709
  Transmission Date: 20151125
  Serious: Yes (Death, Other)
  Sender: FDA-Public Use
  Company Number: IE-BAYER-2015-332455

PATIENT
  Age: 54 Year
  Sex: Male

DRUGS (1)
  1. STIVARGA [Suspect]
     Active Substance: REGORAFENIB
     Indication: COLORECTAL CANCER
     Dosage: 160 MG AM
     Route: 048
     Dates: start: 20150518, end: 20150530

REACTIONS (2)
  - Death [Fatal]
  - Colorectal cancer [None]

NARRATIVE: CASE EVENT DATE: 201505
